FAERS Safety Report 10146573 (Version 4)
Quarter: 2015Q1

REPORT INFORMATION
  Report Type: Report from Study
  Country: US (occurrence: US)
  Receive Date: 20140501
  Receipt Date: 20150203
  Transmission Date: 20150720
  Serious: Yes (Other)
  Sender: FDA-Public Use
  Company Number: US-SA-2014SA054621

PATIENT
  Age: 51 Year
  Sex: Female

DRUGS (7)
  1. AMPYRA [Concomitant]
     Active Substance: DALFAMPRIDINE
     Dosage: SLOW RELEASE
     Dates: start: 201205
  2. VITAMIN E [Concomitant]
     Active Substance: .ALPHA.-TOCOPHEROL
  3. TIZANIDINE (TIZANIDINE) [Concomitant]
     Active Substance: TIZANIDINE
     Dosage: TWICE A DAY TAKES ONE MID MORNING AND ONE IN THE AFTERNOON
     Dates: start: 201203
  4. PRIMIDONE. [Concomitant]
     Active Substance: PRIMIDONE
     Dosage: ONE AT BEDTIME NIGHTLY
     Dates: start: 201209
  5. CALCIUM [Concomitant]
     Active Substance: CALCIUM
  6. FISH OIL [Concomitant]
     Active Substance: FISH OIL
  7. AUBAGIO [Suspect]
     Active Substance: TERIFLUNOMIDE
     Indication: MULTIPLE SCLEROSIS
     Route: 048
     Dates: start: 20131111

REACTIONS (2)
  - Optic nerve injury [Not Recovered/Not Resolved]
  - Visual impairment [Not Recovered/Not Resolved]
